FAERS Safety Report 18641369 (Version 1)
Quarter: 2020Q4

REPORT INFORMATION
  Report Type: Spontaneous
  Country: US (occurrence: US)
  Receive Date: 20201221
  Receipt Date: 20201221
  Transmission Date: 20210114
  Serious: No
  Sender: FDA-Public Use
  Company Number: US-ALLERGAN-2021674US

PATIENT
  Sex: Female

DRUGS (6)
  1. FLEXERIL [Concomitant]
     Active Substance: CYCLOBENZAPRINE HYDROCHLORIDE
     Indication: MUSCLE SPASMS
  2. BYSTOLIC [Suspect]
     Active Substance: NEBIVOLOL HYDROCHLORIDE
     Dosage: 7.5 MG, QD
  3. BYSTOLIC [Suspect]
     Active Substance: NEBIVOLOL HYDROCHLORIDE
     Dosage: UNK
     Route: 065
     Dates: start: 2018
  4. LOSARTAN. [Concomitant]
     Active Substance: LOSARTAN
     Dosage: STARTED A COUPLE OF YEARS BACK
  5. SINGULAIR [Concomitant]
     Active Substance: MONTELUKAST SODIUM
     Dosage: 10 MG
     Dates: start: 2000
  6. BYSTOLIC [Suspect]
     Active Substance: NEBIVOLOL HYDROCHLORIDE
     Indication: HYPERTENSION
     Dosage: 5 MG, BID (MORNING AND AT BEDTIME)
     Dates: end: 202005

REACTIONS (4)
  - Muscular weakness [Not Recovered/Not Resolved]
  - Back disorder [Unknown]
  - Product dose omission issue [Unknown]
  - Hypertension [Not Recovered/Not Resolved]
